FAERS Safety Report 11875821 (Version 1)
Quarter: 2015Q4

REPORT INFORMATION
  Report Type: Spontaneous
  Country: DE (occurrence: DE)
  Receive Date: 20151229
  Receipt Date: 20151229
  Transmission Date: 20160305
  Serious: Yes (Hospitalization)
  Sender: FDA-Public Use
  Company Number: GXKR2015DE005551

PATIENT

DRUGS (5)
  1. SIMVASTATIN. [Concomitant]
     Active Substance: SIMVASTATIN
     Dosage: 40 MG, UNK (0-0-1)
  2. BISOPROLOL [Concomitant]
     Active Substance: BISOPROLOL
     Dosage: 2.5 MG, UNK (1-0-0)
  3. DELIX PLUS [Concomitant]
     Active Substance: HYDROCHLOROTHIAZIDE\RAMIPRIL
     Dosage: 1-0-0
  4. CARBAMAZEPINE. [Suspect]
     Active Substance: CARBAMAZEPINE
     Indication: TRIGEMINAL NEURALGIA
     Dosage: 300 MG, UNK (1-0-1)
     Dates: end: 20151123
  5. DELIX [Concomitant]
     Active Substance: RAMIPRIL
     Dosage: 5 MG, UNK (0-0-1)

REACTIONS (6)
  - General physical health deterioration [Unknown]
  - Angioedema [Unknown]
  - Dermatitis psoriasiform [Unknown]
  - Pruritus generalised [Unknown]
  - Rash generalised [Unknown]
  - Stomatitis [Unknown]

NARRATIVE: CASE EVENT DATE: 20151123
